FAERS Safety Report 9767285 (Version 2)
Quarter: 2013Q4

REPORT INFORMATION
  Report Type: Spontaneous
  Country: AU (occurrence: None)
  Receive Date: 20131213
  Receipt Date: 20131218
  Transmission Date: 20140711
  Serious: Yes (Death)
  Sender: FDA-Public Use
  Company Number: 2013MPI00805

PATIENT
  Age: 22 Year
  Sex: Male

DRUGS (1)
  1. BRENTUXIMAB VEDOTIN [Suspect]
     Indication: LYMPHOMA
     Route: 042
     Dates: start: 20121218, end: 20130321

REACTIONS (4)
  - Death [None]
  - Dyspnoea [None]
  - Pyrexia [None]
  - Malaise [None]
